FAERS Safety Report 5051401-2 (Version None)
Quarter: 2006Q3

REPORT INFORMATION
  Report Type: 
  Country: None (occurrence: None)
  Receive Date: 20060714
  Receipt Date: 20060706
  Transmission Date: 20061208
  Serious: Yes (Disabling)
  Sender: FDA-Public Use
  Company Number: 2006UW14189

PATIENT
  Age: 758 Month
  Sex: Female

DRUGS (4)
  1. FASLODEX [Suspect]
     Indication: BREAST CANCER
     Dosage: 250 MG X 2
     Route: 030
     Dates: start: 20060510, end: 20060614
  2. GABAPENTIN [Concomitant]
     Route: 048
  3. RANITIDINE [Concomitant]
     Route: 048
  4. PREDNISONE [Concomitant]
     Route: 048

REACTIONS (2)
  - BLOOD BILIRUBIN INCREASED [None]
  - DRUG EFFECT DECREASED [None]
